FAERS Safety Report 4586526-9 (Version None)
Quarter: 2005Q1

REPORT INFORMATION
  Report Type: 
  Country: None (occurrence: None)
  Receive Date: 20050218
  Receipt Date: 20040116
  Transmission Date: 20050727
  Serious: Yes (Life-Threatening)
  Sender: FDA-Public Use
  Company Number: US-BRISTOL-MYERS SQUIBB COMPANY-12480117

PATIENT
  Age: 56 Year
  Sex: Female

DRUGS (5)
  1. CARBOPLATIN [Suspect]
     Indication: OVARIAN CANCER
     Dosage: NEXT DOSE REC'D ON 20-JAN-2004
     Route: 042
     Dates: start: 20040105, end: 20040105
  2. TAXOL [Suspect]
     Indication: OVARIAN CANCER
     Dosage: NEXT DOSE REC'D ON 20-JAN-2004
     Route: 042
     Dates: start: 20040105, end: 20040105
  3. DECADRON [Concomitant]
     Indication: PREMEDICATION
  4. BENADRYL [Concomitant]
     Indication: PREMEDICATION
  5. TAGAMET [Concomitant]
     Indication: PREMEDICATION

REACTIONS (5)
  - ERYTHEMA [None]
  - NAUSEA [None]
  - PRURITUS [None]
  - RASH [None]
  - VOMITING [None]
